FAERS Safety Report 11068110 (Version 2)
Quarter: 2015Q2

REPORT INFORMATION
  Report Type: Spontaneous
  Country: US (occurrence: US)
  Receive Date: 20150427
  Receipt Date: 20150626
  Transmission Date: 20150821
  Serious: Yes (Other)
  Sender: FDA-Public Use
  Company Number: US-TEVA-558270USA

PATIENT
  Age: 46 Year
  Sex: Female
  Weight: 58.57 kg

DRUGS (3)
  1. PARAGARD T 380A [Suspect]
     Active Substance: COPPER
     Indication: CONTRACEPTION
     Route: 015
  2. GABAPENTIN. [Concomitant]
     Active Substance: GABAPENTIN
     Indication: TRIGEMINAL NEURALGIA
  3. PARAGARD T 380A [Suspect]
     Active Substance: COPPER
     Route: 015

REACTIONS (3)
  - Medical device complication [Unknown]
  - Vaginal haemorrhage [Not Recovered/Not Resolved]
  - Device dislocation [Not Recovered/Not Resolved]

NARRATIVE: CASE EVENT DATE: 201501
